FAERS Safety Report 7661603 (Version 5)
Quarter: 2013Q3

REPORT INFORMATION
  Report Type: Report from Study
  Country: DE (occurrence: DE)
  Receive Date: 20101109
  Receipt Date: 20130711
  Transmission Date: 20140515
  Serious: Yes (Hospitalization)
  Sender: FDA-Public Use
  Company Number: DE-ROCHE-737521

PATIENT
  Age: 56 Year
  Sex: Female
  Weight: 93.8 kg

DRUGS (17)
  1. MYCOPHENOLATE MOFETIL [Suspect]
     Indication: RENAL TRANSPLANT
     Dosage: FREQUENCY 1-0-1, LAST DOSE PRIOR TO SAE 02 SEP 2010, LAST DOSE PRIOT TO SAE URINARY TRACT INFECTION
     Route: 048
  2. TACROLIMUS [Suspect]
     Indication: RENAL TRANSPLANT
     Dosage: LAST DOSE PRIOR TO SAE 02 SEP 2010, LAST DOSE PRIOT TO SAE URINARY TRACT INFECTION ON 26/APR/2010, L
     Route: 048
  3. TACROLIMUS [Suspect]
     Route: 048
  4. BASILIXIMAB [Suspect]
     Indication: RENAL TRANSPLANT
     Dosage: LAST DOSE PRIOR TO SAE 26 APR 2010,
     Route: 042
     Dates: start: 20100422
  5. PREDNISOLONE [Suspect]
     Indication: RENAL TRANSPLANT
     Dosage: LAST DOSE PRIOR TO SAE: 29 APRIL 2010. LAST DOSE PRIOR TO SAE INFECTED LYMPHOCELE ON 15/JUL/2010, LA
     Route: 048
     Dates: start: 20100422
  6. PREDNISOLONE [Suspect]
     Route: 048
  7. PREDNISOLONE [Suspect]
     Route: 048
     Dates: start: 20100805
  8. PREDNISOLONE [Suspect]
     Route: 065
     Dates: start: 20100521, end: 20100521
  9. PREDNISOLONE [Suspect]
     Route: 065
     Dates: start: 20100522, end: 20100523
  10. BELOC-ZOK [Concomitant]
  11. AMLODIPIN [Concomitant]
  12. MOXONIDINE [Concomitant]
  13. PANTOPRAZOLE [Concomitant]
  14. COTRIM FORTE [Concomitant]
  15. CIPROFLOXACIN [Concomitant]
     Route: 065
     Dates: start: 20100514, end: 20100518
  16. CIPROFLOXACIN [Concomitant]
     Route: 065
     Dates: start: 20100422, end: 20100430
  17. TOREM [Concomitant]

REACTIONS (4)
  - Urinary tract infection [Recovered/Resolved]
  - Infected lymphocele [Recovered/Resolved]
  - Transplant rejection [Recovered/Resolved]
  - C-reactive protein increased [Recovered/Resolved]
